FAERS Safety Report 9998971 (Version 1)
Quarter: 2014Q1

REPORT INFORMATION
  Report Type: Spontaneous
  Country: US (occurrence: None)
  Receive Date: 20140311
  Receipt Date: 20140311
  Transmission Date: 20141002
  Serious: Yes (Hospitalization)
  Sender: FDA-Public Use
  Company Number: None

PATIENT
  Age: 68 Year
  Sex: Female
  Weight: 80.29 kg

DRUGS (1)
  1. BYDUREON [Suspect]
     Route: 058

REACTIONS (9)
  - Abdominal pain [None]
  - Malaise [None]
  - Nausea [None]
  - Vomiting [None]
  - Constipation [None]
  - Pain [None]
  - Back pain [None]
  - Abdominal pain [None]
  - Weight decreased [None]
